FAERS Safety Report 22339951 (Version 1)
Quarter: 2023Q2

REPORT INFORMATION
  Report Type: Report from Study
  Country: ES (occurrence: ES)
  Receive Date: 20230518
  Receipt Date: 20230518
  Transmission Date: 20230722
  Serious: Yes (Hospitalization)
  Sender: FDA-Public Use
  Company Number: ES-JNJFOC-20190443334

PATIENT
  Age: 17 Year
  Sex: Female
  Weight: 64.2 kg

DRUGS (11)
  1. ESKETAMINE [Suspect]
     Active Substance: ESKETAMINE
     Indication: Suicidal ideation
     Dates: start: 20190213, end: 20190308
  2. ESKETAMINE [Suspect]
     Active Substance: ESKETAMINE
     Indication: Major depression
  3. PLACEBO [Suspect]
     Active Substance: UNSPECIFIED INGREDIENT
     Indication: Major depression
     Route: 048
     Dates: start: 20190213, end: 20190308
  4. PLACEBO [Suspect]
     Active Substance: UNSPECIFIED INGREDIENT
     Indication: Suicidal ideation
  5. SERTRALINE [Concomitant]
     Active Substance: SERTRALINE HYDROCHLORIDE
     Indication: Major depression
     Route: 048
     Dates: start: 20190213
  6. SERTRALINE [Concomitant]
     Active Substance: SERTRALINE HYDROCHLORIDE
     Indication: Suicidal ideation
  7. ARIPIPRAZOLE [Concomitant]
     Active Substance: ARIPIPRAZOLE
     Indication: Psychotic disorder
     Route: 048
     Dates: start: 20190315
  8. POLYETHYLENE GLYCOLS [Concomitant]
     Active Substance: POLYETHYLENE GLYCOLS
     Indication: Constipation prophylaxis
     Route: 048
     Dates: start: 20190305
  9. LORMETAZEPAM [Concomitant]
     Active Substance: LORMETAZEPAM
     Indication: Major depression
     Route: 048
     Dates: start: 20190227, end: 20190227
  10. LORMETAZEPAM [Concomitant]
     Active Substance: LORMETAZEPAM
     Indication: Suicidal ideation
     Route: 048
     Dates: start: 20190312
  11. MIRTAZAPINE [Concomitant]
     Active Substance: MIRTAZAPINE
     Indication: Major depression
     Route: 048
     Dates: start: 20190402, end: 20190419

REACTIONS (1)
  - Suicidal ideation [Recovered/Resolved]

NARRATIVE: CASE EVENT DATE: 20190423
